FAERS Safety Report 10175622 (Version 2)
Quarter: 2014Q3

REPORT INFORMATION
  Report Type: Report from Study
  Country: US (occurrence: US)
  Receive Date: 20140516
  Receipt Date: 20140814
  Transmission Date: 20150326
  Serious: Yes (Hospitalization, Other)
  Sender: FDA-Public Use
  Company Number: US-BIOGENIDEC-2014BI042899

PATIENT
  Age: 49 Year
  Sex: Female

DRUGS (5)
  1. PROVIGIL [Concomitant]
     Active Substance: MODAFINIL
     Indication: MULTIPLE SCLEROSIS
  2. TYSABRI [Suspect]
     Active Substance: NATALIZUMAB
     Indication: MULTIPLE SCLEROSIS
     Route: 042
     Dates: start: 20090811
  3. ASPIRIN. [Concomitant]
     Active Substance: ASPIRIN
     Indication: DEEP VEIN THROMBOSIS
  4. PEPCID [Concomitant]
     Active Substance: FAMOTIDINE
     Indication: GASTROOESOPHAGEAL REFLUX DISEASE
  5. AMPYRA [Concomitant]
     Active Substance: DALFAMPRIDINE
     Indication: MULTIPLE SCLEROSIS

REACTIONS (1)
  - Intraductal proliferative breast lesion [Recovered/Resolved]

NARRATIVE: CASE EVENT DATE: 201305
